FAERS Safety Report 15992694 (Version 1)
Quarter: 2019Q1

REPORT INFORMATION
  Report Type: Spontaneous
  Country: CA (occurrence: CA)
  Receive Date: 20190221
  Receipt Date: 20190221
  Transmission Date: 20190418
  Serious: Yes (Other)
  Sender: FDA-Public Use
  Company Number: CA-SHIRE-CA201905628

PATIENT

DRUGS (2)
  1. VYVANSE [Suspect]
     Active Substance: LISDEXAMFETAMINE DIMESYLATE
     Dosage: 80 MILLIGRAM, 1X/DAY:QD
     Route: 065
     Dates: start: 20181105
  2. VYVANSE [Suspect]
     Active Substance: LISDEXAMFETAMINE DIMESYLATE
     Indication: ATTENTION DEFICIT/HYPERACTIVITY DISORDER
     Dosage: 80 MILLIGRAM, 1X/DAY:QD
     Route: 065
     Dates: end: 2018

REACTIONS (3)
  - Off label use [Unknown]
  - Foetal death [Unknown]
  - Exposure via body fluid [Unknown]
